FAERS Safety Report 8952831 (Version 2)
Quarter: 2013Q1

REPORT INFORMATION
  Report Type: Spontaneous
  Country: US (occurrence: US)
  Receive Date: 20121204
  Receipt Date: 20130111
  Transmission Date: 20140127
  Serious: No
  Sender: FDA-Public Use
  Company Number: US-009507513-1211USA011763

PATIENT
  Sex: 0
  Weight: 58.96 kg

DRUGS (2)
  1. NEXPLANON [Suspect]
     Dosage: 1 ROD, EVERY 3 YEARS
     Route: 059
     Dates: start: 20121112
  2. NEXPLANON [Suspect]
     Dosage: 1 ROD, EVERY 3 YEARS
     Route: 059
     Dates: start: 20121112

REACTIONS (3)
  - Complication of device insertion [Recovered/Resolved]
  - Product quality issue [Unknown]
  - No adverse event [Unknown]
